FAERS Safety Report 17567959 (Version 1)
Quarter: 2020Q1

REPORT INFORMATION
  Report Type: Spontaneous
  Country: FR (occurrence: FR)
  Receive Date: 20200320
  Receipt Date: 20200320
  Transmission Date: 20200409
  Serious: Yes (Hospitalization)
  Sender: FDA-Public Use
  Company Number: FR-MYLANLABS-2020M1019253

PATIENT
  Age: 38 Year
  Sex: Male
  Weight: 80 kg

DRUGS (4)
  1. OMEPRAZOLE. [Suspect]
     Active Substance: OMEPRAZOLE
     Indication: MENISCUS INJURY
     Dosage: 20 MG, 1/DAY
     Route: 048
     Dates: start: 20191210, end: 20191216
  2. NAPROSYNE [Suspect]
     Active Substance: NAPROXEN
     Indication: PAIN
     Dosage: 1000 MG, 1/DAY
     Route: 048
     Dates: start: 20191210, end: 20191216
  3. DICLOFENAC [Concomitant]
     Active Substance: DICLOFENAC
     Dosage: UNK
  4. DICLOFENAC [Concomitant]
     Active Substance: DICLOFENAC
     Indication: PRODUCT USED FOR UNKNOWN INDICATION
     Dosage: UNK

REACTIONS (4)
  - Paraesthesia [Recovered/Resolved]
  - Pain [Recovered/Resolved]
  - Carpal tunnel syndrome [Recovered/Resolved]
  - Paraesthesia oral [Recovered/Resolved]

NARRATIVE: CASE EVENT DATE: 20191217
